FAERS Safety Report 8810689 (Version 1)
Quarter: 2012Q4

REPORT INFORMATION
  Report Type: Spontaneous
  Country: US (occurrence: None)
  Receive Date: 20120924
  Receipt Date: 20120924
  Transmission Date: 20130627
  Serious: Yes (Disabling)
  Sender: FDA-Public Use
  Company Number: None

PATIENT
  Age: 50 Year
  Sex: Female
  Weight: 67.59 kg

DRUGS (1)
  1. LEVOTHYROXINE [Suspect]
     Indication: HYPOTHYROIDISM
     Route: 048
     Dates: start: 20120727, end: 20120927

REACTIONS (12)
  - Fatigue [None]
  - Somnolence [None]
  - Chest pain [None]
  - Abdominal pain [None]
  - Migraine [None]
  - Arthralgia [None]
  - Hot flush [None]
  - Night sweats [None]
  - Gingival bleeding [None]
  - Rectal haemorrhage [None]
  - Spinal pain [None]
  - Unevaluable event [None]
